FAERS Safety Report 20361093 (Version 1)
Quarter: 2022Q1

REPORT INFORMATION
  Report Type: Spontaneous
  Country: US (occurrence: US)
  Receive Date: 20220121
  Receipt Date: 20220121
  Transmission Date: 20220423
  Serious: Yes (Other)
  Sender: FDA-Public Use
  Company Number: US-BAYER-2022A010756

PATIENT
  Age: 88 Year
  Sex: Male

DRUGS (1)
  1. ALKA-SELTZER PLUS MAXIMUM STRENGTH DAY AND NIGHT COLD AND FLU POWERMAX [Suspect]
     Active Substance: ACETAMINOPHEN\DEXTROMETHORPHAN HYDROBROMIDE\DOXYLAMINE SUCCINATE\PHENYLEPHRINE HYDROCHLORIDE
     Route: 048

REACTIONS (3)
  - Foreign body in throat [Unknown]
  - Wrong technique in product usage process [Unknown]
  - Product use complaint [Unknown]
